FAERS Safety Report 18909657 (Version 1)
Quarter: 2021Q1

REPORT INFORMATION
  Report Type: Spontaneous
  Country: US (occurrence: US)
  Receive Date: 20210217
  Receipt Date: 20210217
  Transmission Date: 20210420
  Serious: No
  Sender: FDA-Public Use
  Company Number: None

PATIENT
  Age: 77 Year
  Sex: Male
  Weight: 106 kg

DRUGS (1)
  1. CARVEDILOL. [Suspect]
     Active Substance: CARVEDILOL
     Indication: HYPERTENSION
     Route: 048
     Dates: start: 20200227, end: 20200919

REACTIONS (4)
  - Atrioventricular block second degree [None]
  - Visual impairment [None]
  - Asthenia [None]
  - Bradycardia [None]

NARRATIVE: CASE EVENT DATE: 20200918
